FAERS Safety Report 23202154 (Version 7)
Quarter: 2024Q1

REPORT INFORMATION
  Report Type: Report from Study
  Country: PT (occurrence: PT)
  Receive Date: 20231120
  Receipt Date: 20240110
  Transmission Date: 20240410
  Serious: Yes (Hospitalization, Other)
  Sender: FDA-Public Use
  Company Number: PT-ABBVIE-5496267

PATIENT
  Age: 56 Year
  Sex: Male

DRUGS (10)
  1. CARBIDOPA\LEVODOPA [Suspect]
     Active Substance: CARBIDOPA\LEVODOPA
     Indication: Parkinson^s disease
     Dosage: 20 MG PLUS 5 MG,?FREQUENCY TEXT: MORN:15CC;MAIN:3CC/H;EXTRA:1CC
     Route: 050
     Dates: start: 20231006, end: 202311
  2. CARBIDOPA\LEVODOPA [Suspect]
     Active Substance: CARBIDOPA\LEVODOPA
     Dosage: 20 MG + 5 MG, FREQUENCY TEXT: MORN:10CC;MAIN:4CC/H;EXTRA:1CC
     Route: 050
     Dates: start: 20231211, end: 20240105
  3. CARBIDOPA\LEVODOPA [Suspect]
     Active Substance: CARBIDOPA\LEVODOPA
     Dosage: FIRST ADMIN DATE: 2023 LAST ADMIN DATE: 2023
     Route: 050
  4. CARBIDOPA\LEVODOPA [Suspect]
     Active Substance: CARBIDOPA\LEVODOPA
     Dosage: 20 MG PLUS 5 MG, FREQUENCY TEXT: MORN:10CC;MAIN:3.5CC/H;EXTRA:1CC, LAST ADMIN DATE: 2023
     Route: 050
     Dates: start: 20231112
  5. RISPERIDONE [Concomitant]
     Active Substance: RISPERIDONE
     Indication: Product used for unknown indication
     Dosage: START DATE: BEFORE DUODOPA, 3 TABLET, FORM STRENGTH:0.5 MILLIGRAM?1 TABLET AT 8AM AND 2TABLETS AT...
  6. WARFARIN SODIUM [Concomitant]
     Active Substance: WARFARIN SODIUM
     Indication: Product used for unknown indication
     Dosage: START DATE: BEFORE DUODOPA, FREQUENCY TEXT: SCHEME ADJUSTED TO INR
  7. ATORVASTATIN [Concomitant]
     Active Substance: ATORVASTATIN
     Indication: Product used for unknown indication
     Dosage: START DATE: BEFORE DUODOPA, FORM STRENGTH: 20 MILLIGRAM
  8. PANTOPRAZOLE [Concomitant]
     Active Substance: PANTOPRAZOLE
     Indication: Product used for unknown indication
     Dosage: START DATE: BEFORE DUODOPA, FORM STRENGTH: 40 MILLIGRAM
  9. RIVASTIGMINE [Concomitant]
     Active Substance: RIVASTIGMINE
     Indication: Product used for unknown indication
     Dosage: START DATE: BEFORE DUODOPA, 2 TABLET, FORM STRENGTH: 6 MILLIGRAM
  10. ARTANE [Concomitant]
     Active Substance: TRIHEXYPHENIDYL HYDROCHLORIDE
     Indication: Product used for unknown indication
     Dosage: START DATE: BEFORE DUODOPA, 2 TABLET, FREQUENCY TEXT: AT 7AM AND AT 4PM, FORM STRENGTH: 2 MILLIGRAM

REACTIONS (8)
  - Urinary tract infection [Recovered/Resolved]
  - Repetitive speech [Recovered/Resolved]
  - Acinetobacter sepsis [Recovered/Resolved]
  - Abdominal pain [Recovered/Resolved]
  - Constipation [Recovered/Resolved]
  - Proteus test positive [Recovered/Resolved]
  - Muscle atrophy [Not Recovered/Not Resolved]
  - Weight decreased [Not Recovered/Not Resolved]

NARRATIVE: CASE EVENT DATE: 20231101
